FAERS Safety Report 22391172 (Version 1)
Quarter: 2023Q2

REPORT INFORMATION
  Report Type: Spontaneous
  Country: CH (occurrence: CH)
  Receive Date: 20230601
  Receipt Date: 20230601
  Transmission Date: 20230721
  Serious: Yes (Hospitalization, Other)
  Sender: FDA-Public Use
  Company Number: CH-ABBVIE-5186334

PATIENT
  Age: 81 Year
  Sex: Female

DRUGS (3)
  1. HUMIRA [Suspect]
     Active Substance: ADALIMUMAB
     Indication: Colitis ulcerative
     Route: 048
  2. UPADACITINIB [Suspect]
     Active Substance: UPADACITINIB
     Indication: Colitis ulcerative
     Dates: start: 201710
  3. Bisacodylum (Dulcolax) [Concomitant]
     Indication: Constipation
     Dates: start: 201710

REACTIONS (7)
  - Hospitalisation [Unknown]
  - Constipation [Recovering/Resolving]
  - Colorectal adenoma [Recovered/Resolved]
  - Off label use [Unknown]
  - Rectal adenocarcinoma [Unknown]
  - Cytomegalovirus test positive [Not Recovered/Not Resolved]
  - Hospitalisation [Unknown]

NARRATIVE: CASE EVENT DATE: 20171001
